FAERS Safety Report 25603798 (Version 1)
Quarter: 2025Q3

REPORT INFORMATION
  Report Type: Spontaneous
  Country: JP (occurrence: JP)
  Receive Date: 20250725
  Receipt Date: 20250725
  Transmission Date: 20251020
  Serious: Yes (Other)
  Sender: ASTELLAS
  Company Number: JP-ASTELLAS-2025-AER-040089

PATIENT
  Age: 24 Year
  Sex: Female

DRUGS (5)
  1. GILTERITINIB [Suspect]
     Active Substance: GILTERITINIB
     Indication: Acute myeloid leukaemia recurrent
     Route: 065
  2. GILTERITINIB [Suspect]
     Active Substance: GILTERITINIB
     Route: 065
  3. GILTERITINIB [Suspect]
     Active Substance: GILTERITINIB
     Route: 065
  4. GILTERITINIB [Suspect]
     Active Substance: GILTERITINIB
     Route: 065
  5. GILTERITINIB [Suspect]
     Active Substance: GILTERITINIB
     Route: 065

REACTIONS (1)
  - Acute myeloid leukaemia recurrent [Unknown]
